FAERS Safety Report 4616853-8 (Version None)
Quarter: 2005Q1

REPORT INFORMATION
  Report Type: 
  Country: None (occurrence: None)
  Receive Date: 20050321
  Receipt Date: 20031003
  Transmission Date: 20050727
  Serious: Yes (Disabling)
  Sender: FDA-Public Use
  Company Number: 6231

PATIENT
  Age: 27 Year
  Sex: Female

DRUGS (4)
  1. NITROGLYCERIN [Suspect]
     Dosage: SEE IMAGE
     Route: 060
  2. URAPIDIL [Concomitant]
  3. METOPROLOL TARTRATE [Concomitant]
  4. MAGNESIUM SULFATE [Concomitant]

REACTIONS (8)
  - BLINDNESS [None]
  - BLOOD PRESSURE INCREASED [None]
  - DRUG EXPOSURE DURING PREGNANCY [None]
  - GRAND MAL CONVULSION [None]
  - HEADACHE [None]
  - MEMORY IMPAIRMENT [None]
  - NUCLEAR MAGNETIC RESONANCE IMAGING BRAIN ABNORMAL [None]
  - VISION BLURRED [None]
